FAERS Safety Report 9136533 (Version 1)
Quarter: 2013Q1

REPORT INFORMATION
  Report Type: Spontaneous
  Country: US (occurrence: US)
  Receive Date: 20130304
  Receipt Date: 20130304
  Transmission Date: 20140127
  Serious: No
  Sender: FDA-Public Use
  Company Number: US-ABBOTT-12P-163-1004845-00

PATIENT
  Sex: Female
  Weight: 79.45 kg

DRUGS (2)
  1. ANDROGEL [Suspect]
     Indication: LIBIDO DECREASED
     Dosage: APPLIES TO STOMACH EVERY OTHER DAY
  2. ANDROGEL [Suspect]
     Dosage: APPLIES TO STOMACH EVERY OTHER DAY

REACTIONS (1)
  - Off label use [Unknown]
